FAERS Safety Report 13620311 (Version 1)
Quarter: 2017Q2

REPORT INFORMATION
  Report Type: Spontaneous
  Country: US (occurrence: US)
  Receive Date: 20170607
  Receipt Date: 20170607
  Transmission Date: 20170830
  Serious: Yes (Hospitalization)
  Sender: FDA-Public Use
  Company Number: US-B.I. PHARMACEUTICALS,INC./RIDGEFIELD-2017-BI-031435

PATIENT
  Sex: Female
  Weight: 123 kg

DRUGS (11)
  1. ALBUTEROL. [Concomitant]
     Active Substance: ALBUTEROL
  2. MULTAQ [Concomitant]
     Active Substance: DRONEDARONE
  3. METOPROLOL. [Concomitant]
     Active Substance: METOPROLOL
  4. DILTIAZEM. [Concomitant]
     Active Substance: DILTIAZEM
  5. FLUTICASONE. [Concomitant]
     Active Substance: FLUTICASONE
  6. SPIRIVA [Concomitant]
     Active Substance: TIOTROPIUM BROMIDE MONOHYDRATE
  7. LASIX [Concomitant]
     Active Substance: FUROSEMIDE
  8. HYDROCORTISONE. [Concomitant]
     Active Substance: HYDROCORTISONE
  9. LOVENOX [Concomitant]
     Active Substance: ENOXAPARIN SODIUM
  10. FAMOTIDINE. [Concomitant]
     Active Substance: FAMOTIDINE
  11. PRADAXA [Suspect]
     Active Substance: DABIGATRAN ETEXILATE MESYLATE
     Indication: ANTICOAGULANT THERAPY
     Route: 065
     Dates: start: 20110517, end: 20110522

REACTIONS (2)
  - Anaemia [Unknown]
  - Lower gastrointestinal haemorrhage [Unknown]
